FAERS Safety Report 20874696 (Version 2)
Quarter: 2023Q4

REPORT INFORMATION
  Report Type: Report from Study
  Country: US (occurrence: US)
  Receive Date: 20220525
  Receipt Date: 20231228
  Transmission Date: 20240110
  Serious: Yes (Death, Other)
  Sender: FDA-Public Use
  Company Number: US-ABBVIE-22K-163-4410021-00

PATIENT
  Age: 79 Year
  Sex: Female

DRUGS (1)
  1. VENCLEXTA [Suspect]
     Active Substance: VENETOCLAX
     Indication: Myelodysplastic syndrome
     Dosage: WITH BREAKFAST 1 WEEK ON, 3 WEEKS OFF? FORM STRENGTH: 100 MG
     Route: 048

REACTIONS (3)
  - Death [Fatal]
  - Cardiac pacemaker insertion [Unknown]
  - Off label use [Unknown]

NARRATIVE: CASE EVENT DATE: 20231130
